FAERS Safety Report 4800793-5 (Version None)
Quarter: 2005Q4

REPORT INFORMATION
  Report Type: 
  Country: None (occurrence: None)
  Receive Date: 20051011
  Receipt Date: 20050926
  Transmission Date: 20060501
  Serious: Yes (Disabling)
  Sender: FDA-Public Use
  Company Number: S05-NOR-03580-01

PATIENT
  Age: 85 Year
  Sex: Female

DRUGS (5)
  1. CIPRALEX (ESCITALOPRAM) [Suspect]
     Indication: ANXIETY
     Dosage: 5 MG QD PO
     Route: 048
     Dates: start: 20050725, end: 20050812
  2. CIPRALEX (ESCITALOPRAM) [Suspect]
     Indication: PANIC DISORDER
     Dosage: 5 MG QD PO
     Route: 048
     Dates: start: 20050725, end: 20050812
  3. CIPRALEX (ESCITALOPRAM) [Suspect]
     Indication: ANXIETY
     Dosage: 5 MG QOD PO
     Route: 048
     Dates: start: 20050813, end: 20050829
  4. CIPRALEX (ESCITALOPRAM) [Suspect]
     Indication: PANIC DISORDER
     Dosage: 5 MG QOD PO
     Route: 048
     Dates: start: 20050813, end: 20050829
  5. CLONAZEPAM [Concomitant]

REACTIONS (5)
  - ANOREXIA [None]
  - CONFUSIONAL STATE [None]
  - INSOMNIA [None]
  - NAUSEA [None]
  - RESTLESSNESS [None]
